FAERS Safety Report 20558340 (Version 1)
Quarter: 2022Q1

REPORT INFORMATION
  Report Type: Spontaneous
  Country: FR (occurrence: FR)
  Receive Date: 20220307
  Receipt Date: 20220307
  Transmission Date: 20220423
  Serious: Yes (Hospitalization, Other)
  Sender: FDA-Public Use
  Company Number: FR-ADVANZ PHARMA-202202001266

PATIENT

DRUGS (2)
  1. PILOCARPINE [Suspect]
     Active Substance: PILOCARPINE
     Indication: Sjogren^s syndrome
     Dosage: 3 DOSAGE FORM, QD
     Route: 048
     Dates: start: 20220203, end: 20220210
  2. PLAQUENIL [Suspect]
     Active Substance: HYDROXYCHLOROQUINE SULFATE
     Indication: Rheumatoid arthritis
     Dosage: 200 MG, QD
     Route: 065
     Dates: start: 20220203, end: 20220210

REACTIONS (3)
  - Rash maculo-papular [Recovering/Resolving]
  - Enanthema [Recovering/Resolving]
  - Pruritus [Recovering/Resolving]

NARRATIVE: CASE EVENT DATE: 20220206
